FAERS Safety Report 4808778-X (Version None)
Quarter: 2005Q4

REPORT INFORMATION
  Report Type: 
  Country: None (occurrence: None)
  Receive Date: 20051021
  Receipt Date: 20041004
  Transmission Date: 20060501
  Serious: No
  Sender: FDA-Public Use
  Company Number: FR_041004920

PATIENT
  Age: 53 Year
  Sex: Male

DRUGS (3)
  1. ZYPREXA [Suspect]
     Indication: SCHIZOPHRENIA
     Dosage: 10 MG/1 DAY
     Dates: start: 20020301, end: 20040707
  2. OXAZEPAM [Concomitant]
  3. NOCTRAN [Concomitant]

REACTIONS (4)
  - DIARRHOEA [None]
  - LEUKOPENIA [None]
  - MONOCYTE COUNT INCREASED [None]
  - NEUTROPENIA [None]
